FAERS Safety Report 17301366 (Version 1)
Quarter: 2020Q1

REPORT INFORMATION
  Report Type: Spontaneous
  Country: US (occurrence: US)
  Receive Date: 20200106
  Receipt Date: 20200106
  Transmission Date: 20200409
  Serious: No
  Sender: FDA-Public Use
  Company Number: None

PATIENT
  Age: 61 Year
  Sex: Female

DRUGS (1)
  1. ENBREL [Suspect]
     Active Substance: ETANERCEPT
     Route: 058

REACTIONS (6)
  - Arthralgia [None]
  - Pain in extremity [None]
  - Insurance issue [None]
  - Peripheral swelling [None]
  - Joint swelling [None]
  - Therapy cessation [None]

NARRATIVE: CASE EVENT DATE: 20190106
